FAERS Safety Report 6882217-X (Version None)
Quarter: 2010Q3

REPORT INFORMATION
  Report Type: 
  Country: None (occurrence: None)
  Receive Date: 20100728
  Receipt Date: 20100728
  Transmission Date: 20110219
  Serious: No
  Sender: FDA-Public Use
  Company Number: None

PATIENT
  Sex: Female

DRUGS (1)
  1. PANAMA JACK CLEAR ZINC SUNSCREEN [Suspect]

REACTIONS (3)
  - APPLICATION SITE SWELLING [None]
  - APPLICATION SITE VESICLES [None]
  - FLUID RETENTION [None]
